FAERS Safety Report 4737872-7 (Version None)
Quarter: 2005Q3

REPORT INFORMATION
  Report Type: 
  Country: None (occurrence: None)
  Receive Date: 20050808
  Receipt Date: 20050808
  Transmission Date: 20060218
  Serious: No
  Sender: FDA-Public Use
  Company Number: None

PATIENT
  Age: 51 Year
  Sex: Male
  Weight: 79.3795 kg

DRUGS (1)
  1. TRIHEXYPHENIDYL 5MG WATSON [Suspect]
     Dosage: 1 TAB IN MORNING AND 1/2 IN EVENING
     Dates: start: 20010101

REACTIONS (5)
  - ANXIETY [None]
  - FLUSHING [None]
  - HALLUCINATION [None]
  - PHARMACEUTICAL PRODUCT COMPLAINT [None]
  - POOR QUALITY DRUG ADMINISTERED [None]
